FAERS Safety Report 9162979 (Version 2)
Quarter: 2013Q1

REPORT INFORMATION
  Report Type: Spontaneous
  Country: US (occurrence: None)
  Receive Date: 20130222
  Receipt Date: 20130227
  Transmission Date: 20140127
  Serious: Yes (Other)
  Sender: FDA-Public Use
  Company Number: USA/USA/13/0028142

PATIENT
  Age: 72 Year
  Sex: Female
  Weight: 74.84 kg

DRUGS (4)
  1. FEXOFENADINE HCL OTC (FEXOFENADINE) [Suspect]
     Indication: HYPERSENSITIVITY
     Route: 048
     Dates: start: 20130216, end: 20130216
  2. THEO-OUR (THEOPHYLLINE) [Concomitant]
  3. PREDNISONE (PREDNISONE) [Concomitant]
  4. FLEXERIL (CYCLOBENZAPRINE HYDROCHLORIDE) [Concomitant]

REACTIONS (2)
  - Angina pectoris [None]
  - Product substitution issue [None]
